FAERS Safety Report 8806903 (Version 1)
Quarter: 2012Q4

REPORT INFORMATION
  Report Type: 
  Country: US (occurrence: US)
  Receive Date: 20120925
  Receipt Date: 20120925
  Transmission Date: 20130627
  Serious: Yes (Death, Life-Threatening)
  Sender: FDA-Public Use
  Company Number: US-ROCHE-1093339

PATIENT
  Sex: Female

DRUGS (4)
  1. AVASTIN [Suspect]
     Indication: BONE NEOPLASM MALIGNANT
  2. HERCEPTIN [Concomitant]
  3. TYKERB [Concomitant]
  4. AVASTIN [Suspect]
     Indication: BREAST CANCER FEMALE
     Route: 042
     Dates: start: 20070524, end: 20070530

REACTIONS (2)
  - Subclavian vein thrombosis [Unknown]
  - Death [Fatal]
